FAERS Safety Report 9056045 (Version 1)
Quarter: 2013Q1

REPORT INFORMATION
  Report Type: Spontaneous
  Country: US (occurrence: US)
  Receive Date: 20130205
  Receipt Date: 20130205
  Transmission Date: 20140127
  Serious: Yes (Other)
  Sender: FDA-Public Use
  Company Number: US-JNJFOC-20130116657

PATIENT
  Sex: Female

DRUGS (1)
  1. NEOSPORIN [Suspect]
     Indication: THERMAL BURN
     Route: 061
     Dates: start: 2007

REACTIONS (3)
  - Application site discharge [Recovered/Resolved]
  - Application site rash [Recovered/Resolved]
  - Rash erythematous [None]
